FAERS Safety Report 21334275 (Version 2)
Quarter: 2022Q4

REPORT INFORMATION
  Report Type: Spontaneous
  Country: US (occurrence: US)
  Receive Date: 20220914
  Receipt Date: 20221121
  Transmission Date: 20230113
  Serious: Yes (Other)
  Sender: FDA-Public Use
  Company Number: US-JNJFOC-20220922086

PATIENT
  Sex: Female

DRUGS (15)
  1. ELMIRON [Suspect]
     Active Substance: PENTOSAN POLYSULFATE SODIUM
     Indication: Cystitis interstitial
     Route: 048
     Dates: start: 200101
  2. ELMIRON [Suspect]
     Active Substance: PENTOSAN POLYSULFATE SODIUM
     Route: 048
     Dates: start: 200909, end: 201901
  3. ELMIRON [Suspect]
     Active Substance: PENTOSAN POLYSULFATE SODIUM
     Route: 048
     Dates: end: 202206
  4. WELLBUTRIN [Concomitant]
     Active Substance: BUPROPION HYDROCHLORIDE
     Indication: Anxiety
     Dates: start: 2012
  5. CLONAZEPAM [Concomitant]
     Active Substance: CLONAZEPAM
     Indication: Anxiety
     Dates: start: 2008
  6. LEVOTHYROXINE [Concomitant]
     Active Substance: LEVOTHYROXINE
     Indication: Hypothyroidism
     Dates: start: 2010
  7. SOTALOL [Concomitant]
     Active Substance: SOTALOL
     Indication: Heart rate
     Dates: start: 2009
  8. OMEPRAZOLE [Concomitant]
     Active Substance: OMEPRAZOLE
     Indication: Gastrooesophageal reflux disease
     Dates: start: 2015, end: 2018
  9. ACETAMINOPHEN\HYDROCODONE [Concomitant]
     Active Substance: ACETAMINOPHEN\HYDROCODONE
     Indication: Analgesic therapy
     Dates: start: 2010, end: 2018
  10. ESTROGENS, CONJUGATED\METHYLTESTOSTERONE [Concomitant]
     Active Substance: ESTROGENS, CONJUGATED\METHYLTESTOSTERONE
     Indication: Hormone therapy
     Dates: start: 2012
  11. VALACYCLOVIR [Concomitant]
     Active Substance: VALACYCLOVIR HYDROCHLORIDE
     Indication: Fibromyalgia
     Dates: start: 2014, end: 2018
  12. MACRODANTIN [Concomitant]
     Active Substance: NITROFURANTOIN
     Indication: Infection prophylaxis
     Dosage: AS NEEDED
     Dates: start: 2015
  13. ALLEGRA [Concomitant]
     Active Substance: FEXOFENADINE HYDROCHLORIDE
     Indication: Hypersensitivity
     Dates: start: 2009
  14. AZO [Concomitant]
     Active Substance: PHENAZOPYRIDINE HYDROCHLORIDE
     Indication: Bladder pain
     Dates: start: 2009
  15. TYLENOL [Concomitant]
     Active Substance: ACETAMINOPHEN
     Indication: Headache
     Dates: start: 2009

REACTIONS (1)
  - Retinal pigmentation [Unknown]

NARRATIVE: CASE EVENT DATE: 20160101
